FAERS Safety Report 16680931 (Version 1)
Quarter: 2019Q3

REPORT INFORMATION
  Report Type: Spontaneous
  Country: FR (occurrence: FR)
  Receive Date: 20190808
  Receipt Date: 20190808
  Transmission Date: 20191004
  Serious: Yes (Other)
  Sender: FDA-Public Use
  Company Number: FR-CELLTRION INC.-2019FR021073

PATIENT

DRUGS (8)
  1. HYDROCORTISONE. [Concomitant]
     Active Substance: HYDROCORTISONE
     Indication: PREMEDICATION
  2. REMSIMA [Suspect]
     Active Substance: INFLIXIMAB
     Dosage: 400 MG, ONCE EVERY 8 WEEKS
     Route: 042
     Dates: start: 20190404, end: 20190404
  3. REMSIMA [Suspect]
     Active Substance: INFLIXIMAB
     Dosage: 400 MG, ONCE EVERY 8 WEEKS
     Route: 042
     Dates: start: 20190503, end: 20190503
  4. REMSIMA [Suspect]
     Active Substance: INFLIXIMAB
     Indication: CROHN^S DISEASE
     Dosage: 400 MG, ONCE EVERY 8 WEEKS
     Route: 042
     Dates: start: 20180323, end: 20180323
  5. REMSIMA [Suspect]
     Active Substance: INFLIXIMAB
     Dosage: 400 MG, ONCE EVERY 8 WEEKS
     Route: 042
     Dates: start: 20190221, end: 20190221
  6. REMSIMA [Suspect]
     Active Substance: INFLIXIMAB
     Dosage: 400 MG, ONCE EVERY 8 WEEKS
     Route: 042
     Dates: start: 20190531, end: 20190531
  7. REMSIMA [Suspect]
     Active Substance: INFLIXIMAB
     Dosage: 400 MG, ONCE EVERY 8 WEEKS
     Route: 042
     Dates: start: 20190626, end: 20190626
  8. HYDROCORTISONE. [Concomitant]
     Active Substance: HYDROCORTISONE
     Indication: CROHN^S DISEASE
     Dosage: 200 MG FOR EACH REMSIMA INJECTION
     Route: 042
     Dates: start: 20180323

REACTIONS (5)
  - Product use issue [Unknown]
  - Abdominal pain [Unknown]
  - Diarrhoea [Unknown]
  - Haematochezia [Unknown]
  - Tachycardia [Unknown]
